FAERS Safety Report 5898737-0 (Version None)
Quarter: 2008Q3

REPORT INFORMATION
  Report Type: 
  Country: None (occurrence: None)
  Receive Date: 20080925
  Receipt Date: 20080514
  Transmission Date: 20090109
  Serious: No
  Sender: FDA-Public Use
  Company Number: A0727904A

PATIENT
  Age: 46 Year
  Sex: Male

DRUGS (3)
  1. WELLBUTRIN XL [Suspect]
     Indication: DEPRESSION
     Dosage: 150MG PER DAY
     Route: 048
     Dates: start: 20071101, end: 20071101
  2. ALTACE [Concomitant]
  3. FENOFIBRATE [Concomitant]

REACTIONS (1)
  - HEADACHE [None]
